FAERS Safety Report 8190946-3 (Version None)
Quarter: 2012Q1

REPORT INFORMATION
  Report Type: 
  Country: None (occurrence: None)
  Receive Date: 20120307
  Receipt Date: 20120224
  Transmission Date: 20120608
  Serious: Yes (Congenital Anomaly, Other)
  Sender: FDA-Public Use
  Company Number: CA-FRI-1000027326

PATIENT

DRUGS (1)
  1. CELEXA [Suspect]
     Dosage: 40 MG
     Route: 064

REACTIONS (2)
  - VERTICAL TALUS [None]
  - FOETAL EXPOSURE DURING PREGNANCY [None]
